FAERS Safety Report 11459994 (Version 1)
Quarter: 2015Q3

REPORT INFORMATION
  Report Type: Spontaneous
  Country: US (occurrence: US)
  Receive Date: 20150904
  Receipt Date: 20150904
  Transmission Date: 20151125
  Serious: Yes (Other)
  Sender: FDA-Public Use
  Company Number: US-ELI_LILLY_AND_COMPANY-US201508008196

PATIENT
  Age: 55 Year
  Sex: Male

DRUGS (2)
  1. EFFIENT [Suspect]
     Active Substance: PRASUGREL HYDROCHLORIDE
     Indication: PERCUTANEOUS CORONARY INTERVENTION
     Dosage: 10 MG, QD
     Route: 065
     Dates: start: 20150602, end: 20150823
  2. EFFIENT [Suspect]
     Active Substance: PRASUGREL HYDROCHLORIDE
     Indication: ACUTE MYOCARDIAL INFARCTION
     Dosage: 60 MG, QD
     Route: 065
     Dates: start: 20150601, end: 20150601

REACTIONS (3)
  - Upper gastrointestinal haemorrhage [Unknown]
  - Gastrooesophageal reflux disease [Unknown]
  - Gastritis [Unknown]

NARRATIVE: CASE EVENT DATE: 20150823
